FAERS Safety Report 22332740 (Version 2)
Quarter: 2023Q2

REPORT INFORMATION
  Report Type: Spontaneous
  Country: NZ (occurrence: NZ)
  Receive Date: 20230517
  Receipt Date: 20230530
  Transmission Date: 20230721
  Serious: Yes (Other)
  Sender: FDA-Public Use
  Company Number: NZ-VERTEX PHARMACEUTICALS-2023-006873

PATIENT
  Age: 52 Year
  Sex: Male

DRUGS (13)
  1. TRIKAFTA [Suspect]
     Active Substance: ELEXACAFTOR\IVACAFTOR\TEZACAFTOR
     Indication: Cystic fibrosis
     Dosage: 2 ORANGE TABLETS AM AND 1 BLUE TABLET PM
     Route: 048
     Dates: start: 20230412
  2. BUDESONIDE\FORMOTEROL FUMARATE DIHYDRATE [Concomitant]
     Active Substance: BUDESONIDE\FORMOTEROL FUMARATE DIHYDRATE
     Dosage: 200/6 2 PUFFS VIA SPACER + PRN AS PER SMART THERAPY
     Route: 048
  3. SPIRIVA [Concomitant]
     Active Substance: TIOTROPIUM BROMIDE MONOHYDRATE
     Dosage: 1 PUFF MANE
     Route: 048
  4. ALBUTEROL [Concomitant]
     Active Substance: ALBUTEROL
  5. PULMOZYME [Concomitant]
     Active Substance: DORNASE ALFA
     Dosage: UNK, BID
     Route: 055
  6. SODIUM CHLORIDE [Concomitant]
     Active Substance: SODIUM CHLORIDE
     Dosage: UNK, BID
  7. AZITHROMYCIN [Concomitant]
     Active Substance: AZITHROMYCIN
     Dosage: M/W/F
  8. BUDESONIDE [Concomitant]
     Active Substance: BUDESONIDE
     Dosage: 2 SPRAYS EACH NOSTRIL BID
     Route: 055
  9. CREON [Concomitant]
     Active Substance: PANCRELIPASE AMYLASE\PANCRELIPASE LIPASE\PANCRELIPASE PROTEASE
     Dosage: 150MG/300MG (10000/25000 LIPASE UNITS)
  10. DIASON [Concomitant]
  11. NOVORAPID [Concomitant]
     Active Substance: INSULIN ASPART
  12. ENALAPRIL [Concomitant]
     Active Substance: ENALAPRIL
  13. RISEDRONATE SODIUM [Concomitant]
     Active Substance: RISEDRONATE SODIUM

REACTIONS (1)
  - Atrial flutter [Recovered/Resolved]

NARRATIVE: CASE EVENT DATE: 20230430
